FAERS Safety Report 6157916-8 (Version None)
Quarter: 2009Q2

REPORT INFORMATION
  Report Type: 
  Country: None (occurrence: None)
  Receive Date: 20090417
  Receipt Date: 20090407
  Transmission Date: 20091009
  Serious: Yes (Hospitalization)
  Sender: FDA-Public Use
  Company Number: FR-SANOFI-SYNTHELABO-A02200900942

PATIENT
  Sex: Female

DRUGS (4)
  1. ERBITUX [Concomitant]
     Route: 041
     Dates: start: 20090104, end: 20090104
  2. FOLINIC ACID [Concomitant]
     Route: 041
     Dates: start: 20090104, end: 20090104
  3. FLUOROURACIL [Concomitant]
     Route: 041
     Dates: start: 20090104, end: 20090104
  4. ELOXATIN [Suspect]
     Indication: OESOPHAGEAL ADENOCARCINOMA
     Route: 041
     Dates: start: 20090104, end: 20090104

REACTIONS (1)
  - VESTIBULAR NEURONITIS [None]
